FAERS Safety Report 6825869-2 (Version None)
Quarter: 2010Q3

REPORT INFORMATION
  Report Type: 
  Country: None (occurrence: None)
  Receive Date: 20100709
  Receipt Date: 20100706
  Transmission Date: 20110219
  Serious: Yes (Hospitalization)
  Sender: FDA-Public Use
  Company Number: US-ELI_LILLY_AND_COMPANY-US201007001087

PATIENT
  Sex: Male

DRUGS (4)
  1. HUMALOG [Suspect]
     Indication: DIABETES MELLITUS
     Dosage: 50 U, 3/D
  2. ANTIHYPERTENSIVES [Concomitant]
  3. SYMLIN [Concomitant]
  4. ZANTAC [Concomitant]

REACTIONS (2)
  - CAROTID ARTERIOSCLEROSIS [None]
  - TREMOR [None]
